FAERS Safety Report 19364589 (Version 1)
Quarter: 2021Q2

REPORT INFORMATION
  Report Type: Spontaneous
  Country: US (occurrence: US)
  Receive Date: 20210603
  Receipt Date: 20210603
  Transmission Date: 20210717
  Serious: Yes (Disabling)
  Sender: FDA-Public Use
  Company Number: None

PATIENT
  Age: 49 Year
  Sex: Female
  Weight: 108 kg

DRUGS (4)
  1. METHYLPHENIDATE. [Concomitant]
     Active Substance: METHYLPHENIDATE
  2. WELLBUTRIN XL [Concomitant]
     Active Substance: BUPROPION HYDROCHLORIDE
  3. LEVOFLOXACIN. [Suspect]
     Active Substance: LEVOFLOXACIN
     Indication: URINARY TRACT INFECTION
     Dosage: ?          QUANTITY:1 TABLET(S);OTHER FREQUENCY:ONCE DAILY;?
     Route: 048
     Dates: start: 20210519, end: 20210523
  4. MULTIVITAMIN [Concomitant]
     Active Substance: VITAMINS

REACTIONS (8)
  - Arthralgia [None]
  - Pain in extremity [None]
  - Oedema peripheral [None]
  - Tendon pain [None]
  - Myalgia [None]
  - Dizziness [None]
  - Muscular weakness [None]
  - Urinary incontinence [None]

NARRATIVE: CASE EVENT DATE: 20210523
